FAERS Safety Report 25714004 (Version 2)
Quarter: 2025Q3

REPORT INFORMATION
  Report Type: Spontaneous
  Country: US (occurrence: US)
  Receive Date: 20250822
  Receipt Date: 20250923
  Transmission Date: 20251021
  Serious: No
  Sender: BRISTOL-MYERS SQUIBB COMPANY
  Company Number: US-BRISTOL-MYERS SQUIBB COMPANY-2025-116910

PATIENT
  Age: 42 Year
  Sex: Male

DRUGS (2)
  1. REVLIMID [Suspect]
     Active Substance: LENALIDOMIDE
     Indication: Nodular lymphocyte predominant Hodgkin lymphoma
  2. REVLIMID [Suspect]
     Active Substance: LENALIDOMIDE

REACTIONS (2)
  - Diarrhoea [Recovered/Resolved]
  - Off label use [Unknown]
